FAERS Safety Report 24122921 (Version 1)
Quarter: 2024Q3

REPORT INFORMATION
  Report Type: Spontaneous
  Country: FR (occurrence: FR)
  Receive Date: 20240723
  Receipt Date: 20240723
  Transmission Date: 20241016
  Serious: No
  Sender: ALKEM
  Company Number: FR-ALKEM LABORATORIES LIMITED-FR-ALKEM-2022-15456

PATIENT
  Sex: Male

DRUGS (8)
  1. DRONABINOL [Suspect]
     Active Substance: DRONABINOL
     Indication: Neuralgia
     Dosage: 2.5 MILLIGRAM, QD (PROGRESSIVE INCREASE FROM 1 TO 3 CAPSULES DAILY)
     Route: 065
  2. DRONABINOL [Suspect]
     Active Substance: DRONABINOL
     Dosage: 15 MILLIGRAM, QD (6 CAPSULES DAILY)
     Route: 065
  3. DRONABINOL [Suspect]
     Active Substance: DRONABINOL
     Dosage: UNK, QD (3 TO 4 CAPSULES DAILY)
     Route: 065
  4. BACLOFEN [Concomitant]
     Active Substance: BACLOFEN
     Indication: Product used for unknown indication
     Dosage: 3 DOSAGE FORM, TID (3-3-3)
     Route: 065
  5. Capsaicine [Concomitant]
     Indication: Cervical radiculopathy
     Dosage: UNK
     Route: 065
  6. VENLAFAXINE HYDROCHLORIDE [Concomitant]
     Active Substance: VENLAFAXINE HYDROCHLORIDE
     Indication: Product used for unknown indication
     Dosage: 75 MILLIGRAM, QD (IN THE MORNING)
     Route: 065
  7. LIDOCAINE [Concomitant]
     Active Substance: LIDOCAINE
     Indication: Cervical radiculopathy
     Dosage: UNK
     Route: 065
  8. PREGABALIN [Concomitant]
     Active Substance: PREGABALIN
     Indication: Product used for unknown indication
     Dosage: UNK (150-100-150)
     Route: 065

REACTIONS (6)
  - Pain [Unknown]
  - Therapy interrupted [Unknown]
  - Off label use [Unknown]
  - Prescribed underdose [Unknown]
  - Product prescribing issue [Unknown]
  - Product availability issue [Unknown]
